FAERS Safety Report 19632906 (Version 3)
Quarter: 2022Q1

REPORT INFORMATION
  Report Type: Report from Study
  Country: JP (occurrence: JP)
  Receive Date: 20210730
  Receipt Date: 20220321
  Transmission Date: 20220423
  Serious: Yes (Death)
  Sender: FDA-Public Use
  Company Number: JP-ABBVIE-21K-087-4016765-00

PATIENT
  Age: 72 Year
  Sex: Male
  Weight: 59.4 kg

DRUGS (14)
  1. VENCLEXTA [Suspect]
     Active Substance: VENETOCLAX
     Indication: Acute myeloid leukaemia
     Route: 048
     Dates: start: 20210419, end: 20210419
  2. VENCLEXTA [Suspect]
     Active Substance: VENETOCLAX
     Route: 048
     Dates: start: 20210420, end: 20210420
  3. VENCLEXTA [Suspect]
     Active Substance: VENETOCLAX
     Route: 048
     Dates: start: 20210421
  4. VIDAZA [Suspect]
     Active Substance: AZACITIDINE
     Indication: Acute myeloid leukaemia
     Route: 050
     Dates: start: 20210419
  5. GRANISETRON [Suspect]
     Active Substance: GRANISETRON
     Indication: Product used for unknown indication
     Route: 065
  6. MICAFUNGIN [Suspect]
     Active Substance: MICAFUNGIN
     Indication: Infection prophylaxis
     Route: 050
     Dates: start: 20210419, end: 20210517
  7. MEROPENEM [Suspect]
     Active Substance: MEROPENEM
     Indication: Infection prophylaxis
     Route: 050
     Dates: start: 20210420, end: 20210423
  8. AMITIZA [Suspect]
     Active Substance: LUBIPROSTONE
     Indication: Product used for unknown indication
     Route: 065
  9. SILODOSIN [Suspect]
     Active Substance: SILODOSIN
     Indication: Product used for unknown indication
     Route: 065
  10. SENNOSIDES [Suspect]
     Active Substance: SENNOSIDES
     Indication: Product used for unknown indication
     Route: 065
  11. FEBUXOSTAT [Suspect]
     Active Substance: FEBUXOSTAT
     Indication: Prophylaxis
     Route: 048
     Dates: start: 20210408
  12. SILODOSIN [Suspect]
     Active Substance: SILODOSIN
     Indication: Product used for unknown indication
     Route: 065
  13. DEXTROSE\SODIUM CHLORIDE\SODIUM LACTATE [Suspect]
     Active Substance: DEXTROSE\SODIUM CHLORIDE\SODIUM LACTATE
     Indication: Product used for unknown indication
     Route: 065
  14. LEVOFLOXACIN HEMIHYDRATE [Concomitant]
     Active Substance: LEVOFLOXACIN
     Indication: Infection prophylaxis
     Route: 048
     Dates: start: 20210416, end: 20210419

REACTIONS (2)
  - Sepsis [Fatal]
  - Liver disorder [Recovered/Resolved]

NARRATIVE: CASE EVENT DATE: 20210420
